FAERS Safety Report 8248779-5 (Version None)
Quarter: 2012Q1

REPORT INFORMATION
  Report Type: 
  Country: None (occurrence: None)
  Receive Date: 20120331
  Receipt Date: 20120323
  Transmission Date: 20120608
  Serious: Yes (Hospitalization, Other)
  Sender: FDA-Public Use
  Company Number: US-AMGEN-TCS397884

PATIENT
  Age: 66 Year
  Sex: Male

DRUGS (1)
  1. ENBREL [Suspect]
     Indication: ANKYLOSING SPONDYLITIS
     Dosage: 25 MG, Q2WK
     Route: 058
     Dates: start: 20030101

REACTIONS (13)
  - OSTEOPOROSIS [None]
  - CHRONIC OBSTRUCTIVE PULMONARY DISEASE [None]
  - BRONCHITIS [None]
  - BACK PAIN [None]
  - SPINAL COLUMN INJURY [None]
  - RENAL STONE REMOVAL [None]
  - HIP SURGERY [None]
  - ARTHRALGIA [None]
  - MOBILITY DECREASED [None]
  - SPINAL FRACTURE [None]
  - FALL [None]
  - NEPHROLITHIASIS [None]
  - LUNG DISORDER [None]
